FAERS Safety Report 5010118-0 (Version None)
Quarter: 2006Q2

REPORT INFORMATION
  Report Type: 
  Country: None (occurrence: None)
  Receive Date: 20060404
  Receipt Date: 20051206
  Transmission Date: 20061013
  Serious: No
  Sender: FDA-Public Use
  Company Number: US200512001128

PATIENT
  Age: 55 Year
  Sex: Female

DRUGS (3)
  1. CYMBALTA [Suspect]
     Indication: DEPRESSION
     Dosage: 60 MG,
     Dates: start: 20050901
  2. STRATTERA [Suspect]
     Indication: ATTENTION DEFICIT/HYPERACTIVITY DISORDER
     Dosage: 60 MG
     Dates: start: 20030101
  3. LEXAPRO [Concomitant]

REACTIONS (9)
  - AGEUSIA [None]
  - APHTHOUS STOMATITIS [None]
  - DEPRESSION [None]
  - DRUG INEFFECTIVE [None]
  - DYSGEUSIA [None]
  - FEELING ABNORMAL [None]
  - GLOSSITIS [None]
  - HERPES SIMPLEX [None]
  - ORAL PAIN [None]
